FAERS Safety Report 15156777 (Version 1)
Quarter: 2018Q3

REPORT INFORMATION
  Report Type: Spontaneous
  Country: DE (occurrence: DE)
  Receive Date: 20180717
  Receipt Date: 20180717
  Transmission Date: 20181010
  Serious: Yes (Other)
  Sender: FDA-Public Use
  Company Number: DE-BAXTER-2018BAX019142

PATIENT
  Age: 71 Year
  Sex: Female

DRUGS (1)
  1. PHOXILIUM [Suspect]
     Active Substance: CALCIUM CL\MAGNESIUM CL\POTASSIUM CL\SODIUM BICAR\SODIUM CL\SODIUM PHOSPHATE,DIB
     Indication: HAEMODIALYSIS
     Dosage: ACUTE PHOXILIUM TREATMENT ? SOLVENT FOR DIALYSIS ? CVVHDF,  PRISMAFLEX DIALYSIS UNIT
     Route: 065

REACTIONS (2)
  - Product quality issue [Unknown]
  - Haemorrhage [Unknown]

NARRATIVE: CASE EVENT DATE: 20180624
